FAERS Safety Report 16893640 (Version 1)
Quarter: 2019Q4

REPORT INFORMATION
  Report Type: Spontaneous
  Country: GB (occurrence: GB)
  Receive Date: 20191008
  Receipt Date: 20191008
  Transmission Date: 20200122
  Serious: Yes (Other)
  Sender: FDA-Public Use
  Company Number: GB-MYLANLABS-2019M1092417

PATIENT
  Age: 80 Year
  Sex: Female
  Weight: 53 kg

DRUGS (9)
  1. ROSUVASTATIN. [Concomitant]
     Active Substance: ROSUVASTATIN
     Dosage: 5 MILLIGRAM, QD
     Dates: start: 20171108
  2. PHENYTOIN SODIUM. [Concomitant]
     Active Substance: PHENYTOIN SODIUM
     Dosage: 50 AND 100MG
     Dates: start: 20170901
  3. LEVOTHYROXINE. [Concomitant]
     Active Substance: LEVOTHYROXINE
     Dosage: MORNING. 50 AND 100MG.
     Dates: start: 20170901
  4. LORATADINE. [Concomitant]
     Active Substance: LORATADINE
     Dosage: 10 MILLIGRAM, QD
     Dates: start: 20170918
  5. CLOPIDOGREL [Concomitant]
     Active Substance: CLOPIDOGREL BISULFATE
     Dosage: LONG-TERM
     Dates: start: 20170901
  6. LOSARTAN. [Concomitant]
     Active Substance: LOSARTAN
     Dosage: BOOK BLOOD TEST FOR2WEEKS AFTER START
     Dates: start: 20170901
  7. ATORVASTATIN [Suspect]
     Active Substance: ATORVASTATIN
     Indication: PRODUCT USED FOR UNKNOWN INDICATION
     Dosage: 20 MILLIGRAM
     Route: 048
  8. FERROUS FUMARATE [Concomitant]
     Active Substance: FERROUS FUMARATE
     Dosage: 630 MILLIGRAM, QD
     Dates: start: 20170920
  9. AMLODIPINE [Concomitant]
     Active Substance: AMLODIPINE BESYLATE
     Dosage: 10 MILLIGRAM, QD
     Dates: start: 20170901

REACTIONS (4)
  - Middle insomnia [Unknown]
  - Initial insomnia [Unknown]
  - Nightmare [Unknown]
  - Musculoskeletal stiffness [Unknown]
